FAERS Safety Report 22226380 (Version 3)
Quarter: 2023Q2

REPORT INFORMATION
  Report Type: Report from Study
  Country: TR (occurrence: None)
  Receive Date: 20230419
  Receipt Date: 20230605
  Transmission Date: 20230722
  Serious: Yes (Hospitalization)
  Sender: FDA-Public Use
  Company Number: TR-ROCHE-3330327

PATIENT
  Age: 69 Year
  Sex: Male
  Weight: 71 kg

DRUGS (15)
  1. TIRAGOLUMAB [Suspect]
     Active Substance: TIRAGOLUMAB
     Indication: Non-small cell lung cancer metastatic
     Dosage: ON 03/MAR/2023, HE RECEIVED BLINDED TIRAGOLUMAB PRIOR TO GENERAL CONDITION DISORDER DUE TO BRAIN MET
     Route: 042
     Dates: start: 20230112
  2. ATEZOLIZUMAB [Suspect]
     Active Substance: ATEZOLIZUMAB
     Indication: Non-small cell lung cancer metastatic
     Dosage: ON 03/MAR/2023, HE RECEIVED BLINDED ATEZOLIZUMAB PRIOR TO GENERAL CONDITION DISORDER DUE TO BRAIN ME
     Route: 041
     Dates: start: 20230112
  3. CARBOPLATIN [Suspect]
     Active Substance: CARBOPLATIN
     Indication: Non-small cell lung cancer metastatic
     Dosage: ON 03/MAR/2023, HE RECEIVED CARBOPLATIN PRIOR TO GENERAL CONDITION DISORDER DUE TO BRAIN METASTASIS
     Route: 042
     Dates: start: 20230202
  4. CISPLATIN [Suspect]
     Active Substance: CISPLATIN
     Indication: Non-small cell lung cancer metastatic
     Route: 042
     Dates: start: 20230112
  5. PEMETREXED [Suspect]
     Active Substance: PEMETREXED
     Indication: Non-small cell lung cancer metastatic
     Dosage: ON 03/MAR/2023, HE RECEIVED PEMETREXED PRIOR TO GENERAL CONDITION DISORDER DUE TO BRAIN METASTASIS W
     Route: 042
     Dates: start: 20230112
  6. DEXAMETHASONE [Concomitant]
     Active Substance: DEXAMETHASONE
     Indication: Premedication
     Dates: start: 20230112
  7. PHENIRAMINE [Concomitant]
     Active Substance: PHENIRAMINE
     Indication: Premedication
     Dates: start: 20230112
  8. FOLIC ACID [Concomitant]
     Active Substance: FOLIC ACID
     Indication: Prophylaxis
     Dates: start: 20230112
  9. MICARDIS [Concomitant]
     Active Substance: TELMISARTAN
     Indication: Hypertension
     Dates: start: 2002
  10. LACIDIPINE [Concomitant]
     Active Substance: LACIDIPINE
     Indication: Hypertension
     Dates: start: 2002
  11. JANUMET [Concomitant]
     Active Substance: METFORMIN HYDROCHLORIDE\SITAGLIPTIN PHOSPHATE
     Indication: Type 2 diabetes mellitus
     Dates: start: 2019
  12. TRAMADOL HYDROCHLORIDE [Concomitant]
     Active Substance: TRAMADOL HYDROCHLORIDE
     Indication: Bone pain
     Dates: start: 202211
  13. CATAFLAM [Concomitant]
     Active Substance: DICLOFENAC POTASSIUM
     Indication: Bone pain
     Dates: start: 20230113
  14. MAGNESIE CALCINEE [Concomitant]
     Indication: Constipation
     Dates: start: 20230303
  15. MAGNESIE CALCINEE [Concomitant]
     Indication: Hypomagnesaemia

REACTIONS (1)
  - Metastases to central nervous system [Recovering/Resolving]

NARRATIVE: CASE EVENT DATE: 20230411
